FAERS Safety Report 19910371 (Version 1)
Quarter: 2021Q4

REPORT INFORMATION
  Report Type: Other
  Country: AU (occurrence: AU)
  Receive Date: 20211004
  Receipt Date: 20211004
  Transmission Date: 20220304
  Serious: Yes (Hospitalization)
  Sender: FDA-Public Use
  Company Number: AU-TOLMAR, INC.-21AU027614

PATIENT
  Sex: Male

DRUGS (1)
  1. ELIGARD [Suspect]
     Active Substance: LEUPROLIDE ACETATE
     Indication: Prostate cancer
     Dosage: 45 MG, Q 6 MONTH
     Route: 065
     Dates: start: 20200528

REACTIONS (1)
  - Lymphadenopathy [Unknown]

NARRATIVE: CASE EVENT DATE: 20210101
